FAERS Safety Report 24397821 (Version 3)
Quarter: 2024Q4

REPORT INFORMATION
  Report Type: Spontaneous
  Country: FR (occurrence: FR)
  Receive Date: 20241004
  Receipt Date: 20241111
  Transmission Date: 20250115
  Serious: Yes (Life-Threatening, Hospitalization, Other)
  Sender: MYLAN
  Company Number: None

PATIENT
  Age: 39 Year
  Sex: Female
  Weight: 64 kg

DRUGS (20)
  1. NOREPINEPHRINE [Suspect]
     Active Substance: NOREPINEPHRINE\NOREPINEPHRINE BITARTRATE
     Indication: Hypotension
     Dosage: UNK
     Route: 042
  2. NOREPINEPHRINE [Suspect]
     Active Substance: NOREPINEPHRINE\NOREPINEPHRINE BITARTRATE
     Dosage: UNK
     Route: 042
  3. NOREPINEPHRINE [Suspect]
     Active Substance: NOREPINEPHRINE\NOREPINEPHRINE BITARTRATE
     Dosage: UNK
     Route: 042
  4. NOREPINEPHRINE [Suspect]
     Active Substance: NOREPINEPHRINE\NOREPINEPHRINE BITARTRATE
     Dosage: UNK
     Route: 042
  5. MIDAZOLAM [Suspect]
     Active Substance: MIDAZOLAM
     Indication: Anxiety
     Dosage: 1 MILLIGRAM
     Route: 042
  6. MIDAZOLAM [Suspect]
     Active Substance: MIDAZOLAM
     Dosage: 1 MILLIGRAM
     Route: 042
  7. MIDAZOLAM [Suspect]
     Active Substance: MIDAZOLAM
     Dosage: 1 MILLIGRAM
     Route: 042
  8. MIDAZOLAM [Suspect]
     Active Substance: MIDAZOLAM
     Dosage: 1 MILLIGRAM
     Route: 042
  9. BUPIVACAINE [Suspect]
     Active Substance: BUPIVACAINE
     Indication: Spinal anaesthesia
     Dosage: 10 MILLIGRAM
     Route: 037
  10. BUPIVACAINE [Suspect]
     Active Substance: BUPIVACAINE
     Dosage: 10 MILLIGRAM
     Route: 037
  11. BUPIVACAINE [Suspect]
     Active Substance: BUPIVACAINE
     Dosage: 10 MILLIGRAM
     Route: 037
  12. BUPIVACAINE [Suspect]
     Active Substance: BUPIVACAINE
     Dosage: 10 MILLIGRAM
     Route: 037
  13. LIDOCAINE HYDROCHLORIDE [Suspect]
     Active Substance: LIDOCAINE HYDROCHLORIDE
     Indication: Spinal anaesthesia
     Dosage: 30 MILLIGRAM
     Route: 058
  14. LIDOCAINE HYDROCHLORIDE [Suspect]
     Active Substance: LIDOCAINE HYDROCHLORIDE
     Dosage: 30 MILLIGRAM
     Route: 058
  15. LIDOCAINE HYDROCHLORIDE [Suspect]
     Active Substance: LIDOCAINE HYDROCHLORIDE
     Dosage: 30 MILLIGRAM
     Route: 058
  16. LIDOCAINE HYDROCHLORIDE [Suspect]
     Active Substance: LIDOCAINE HYDROCHLORIDE
     Dosage: 30 MILLIGRAM
     Route: 058
  17. EPHEDRINE HYDROCHLORIDE [Suspect]
     Active Substance: EPHEDRINE HYDROCHLORIDE
     Indication: Hypotension
     Dosage: 6 MILLIGRAM
     Route: 042
  18. EPHEDRINE HYDROCHLORIDE [Suspect]
     Active Substance: EPHEDRINE HYDROCHLORIDE
     Dosage: 6 MILLIGRAM
     Route: 042
  19. EPHEDRINE HYDROCHLORIDE [Suspect]
     Active Substance: EPHEDRINE HYDROCHLORIDE
     Dosage: 6 MILLIGRAM
     Route: 042
  20. EPHEDRINE HYDROCHLORIDE [Suspect]
     Active Substance: EPHEDRINE HYDROCHLORIDE
     Dosage: 6 MILLIGRAM
     Route: 042

REACTIONS (6)
  - Ventricular tachycardia [Recovered/Resolved]
  - Paraesthesia [Recovered/Resolved]
  - Nausea [Recovered/Resolved]
  - Dyspnoea [Recovered/Resolved]
  - Hypotension [Recovered/Resolved]
  - Headache [Recovered/Resolved]

NARRATIVE: CASE EVENT DATE: 20240903
